FAERS Safety Report 23514534 (Version 2)
Quarter: 2024Q1

REPORT INFORMATION
  Report Type: Spontaneous
  Country: US (occurrence: US)
  Receive Date: 20240212
  Receipt Date: 20240314
  Transmission Date: 20240410
  Serious: Yes (Life-Threatening, Hospitalization, Other)
  Sender: FDA-Public Use
  Company Number: US-PFIZER INC-PV202400018599

PATIENT
  Age: 73 Year
  Sex: Female

DRUGS (1)
  1. PAXLOVID [Suspect]
     Active Substance: NIRMATRELVIR\RITONAVIR
     Indication: COVID-19 treatment
     Dosage: UNK
     Dates: start: 20240207, end: 20240212

REACTIONS (5)
  - Pulmonary embolism [Recovered/Resolved]
  - Myocardial injury [Unknown]
  - Liver injury [Unknown]
  - White blood cell count increased [Unknown]
  - Malaise [Unknown]

NARRATIVE: CASE EVENT DATE: 20240201
